FAERS Safety Report 10924291 (Version 2)
Quarter: 2015Q2

REPORT INFORMATION
  Report Type: Spontaneous
  Country: US (occurrence: US)
  Receive Date: 20150318
  Receipt Date: 20150429
  Transmission Date: 20150821
  Serious: Yes (Hospitalization, Other)
  Sender: FDA-Public Use
  Company Number: US-AMGEN-USASP2015024788

PATIENT
  Age: 49 Year
  Sex: Female

DRUGS (1)
  1. ENBREL [Suspect]
     Active Substance: ETANERCEPT
     Indication: RHEUMATOID ARTHRITIS
     Dosage: 50 MG, QWK
     Route: 065
     Dates: start: 20140729

REACTIONS (7)
  - Tooth extraction [Recovered/Resolved]
  - Injection site pain [Not Recovered/Not Resolved]
  - Anal abscess [Recovered/Resolved]
  - Device failure [Not Recovered/Not Resolved]
  - Injection site reaction [Not Recovered/Not Resolved]
  - Post procedural discharge [Recovered/Resolved]
  - Stomatitis [Not Recovered/Not Resolved]

NARRATIVE: CASE EVENT DATE: 201407
